FAERS Safety Report 4430745-9 (Version None)
Quarter: 2004Q3

REPORT INFORMATION
  Report Type: 
  Country: None (occurrence: None)
  Receive Date: 20040818
  Receipt Date: 20040806
  Transmission Date: 20050211
  Serious: Yes (Hospitalization)
  Sender: FDA-Public Use
  Company Number: 2004UW16902

PATIENT
  Age: 84 Year
  Sex: Female

DRUGS (4)
  1. LOSEC [Suspect]
     Dosage: 20 MG QD PO
     Route: 048
     Dates: start: 20040601, end: 20040101
  2. ACCUPRIL [Concomitant]
  3. INDAPAMIDE [Concomitant]
  4. SYNTHROID [Concomitant]

REACTIONS (3)
  - PURPURA [None]
  - SYSTEMIC LUPUS ERYTHEMATOSUS [None]
  - VASCULITIS [None]
